FAERS Safety Report 4286452-9 (Version None)
Quarter: 2004Q1

REPORT INFORMATION
  Report Type: 
  Country: None (occurrence: None)
  Receive Date: 20040204
  Receipt Date: 20040121
  Transmission Date: 20041129
  Serious: Yes (Life-Threatening, Hospitalization)
  Sender: FDA-Public Use
  Company Number: 2004IC000005

PATIENT
  Age: 56 Year
  Sex: Female

DRUGS (7)
  1. FLUOROURACIL [Suspect]
     Indication: GASTRIC CANCER
     Dosage: 750 MG; INTRAVENOUS
     Route: 042
     Dates: start: 20030916, end: 20031029
  2. TS-1 (GENERIC UNKNOW) [Suspect]
     Indication: GASTRIC CANCER
     Dosage: 100 MG; ORAL
     Route: 048
     Dates: start: 20031106, end: 20031114
  3. ISOVORIN ^WYETH LABORATORIES^ [Concomitant]
  4. PRIMPERAN TAB [Concomitant]
  5. NEU-UP [Concomitant]
  6. PROTECADIN [Concomitant]
  7. RIZE [Concomitant]

REACTIONS (5)
  - HYPERSENSITIVITY [None]
  - INTERSTITIAL LUNG DISEASE [None]
  - LYMPHOCYTE STIMULATION TEST POSITIVE [None]
  - TOXIC SKIN ERUPTION [None]
  - TUMOUR MARKER INCREASED [None]
